FAERS Safety Report 6644824-9 (Version None)
Quarter: 2010Q1

REPORT INFORMATION
  Report Type: 
  Country: None (occurrence: None)
  Receive Date: 20100322
  Receipt Date: 20100312
  Transmission Date: 20100710
  Serious: Yes (Hospitalization)
  Sender: FDA-Public Use
  Company Number: GXKR2010US03019

PATIENT
  Age: 30 Year
  Sex: Male
  Weight: 134 kg

DRUGS (11)
  1. TESTOSTERONE (NGX) [Suspect]
     Indication: MUSCLE BUILDING THERAPY
  2. TESTOSTERONE (NGX) [Suspect]
     Dosage: 500 MG, QW2
     Route: 030
  3. METHYLTESTOSTERONE [Suspect]
     Indication: MUSCLE BUILDING THERAPY
     Route: 048
  4. HUMAN GROWTH HORMONE, RECOMBINANT [Concomitant]
     Dosage: 4IU 5 DAYS/WK
  5. INSULIN [Concomitant]
  6. EPHEDRINE SUL CAP [Concomitant]
     Dosage: 75 MG, UNK
  7. CAFFEINE [Concomitant]
     Dosage: 600 MG, UNK
  8. CREATINE [Concomitant]
     Dosage: 10 G/DAY
  9. AMINO ACIDS NOS [Concomitant]
     Dosage: 1000 MG/DAY
  10. GLUTAMATE SODIUM [Concomitant]
     Dosage: 10 G/DAY
  11. PROTEINS NOS W/VITAMINS NOS [Concomitant]

REACTIONS (9)
  - ARTERIOSCLEROSIS [None]
  - DRUG ABUSE [None]
  - FOCAL SEGMENTAL GLOMERULOSCLEROSIS [None]
  - HYPERTENSION [None]
  - NEPHROTIC SYNDROME [None]
  - OEDEMA PERIPHERAL [None]
  - PROTEINURIA [None]
  - RENAL FAILURE [None]
  - SLEEP APNOEA SYNDROME [None]
